FAERS Safety Report 11523314 (Version 1)
Quarter: 2015Q3

REPORT INFORMATION
  Report Type: Spontaneous
  Country: US (occurrence: US)
  Receive Date: 20150903
  Receipt Date: 20150903
  Transmission Date: 20151125
  Serious: No
  Sender: FDA-Public Use
  Company Number: US-ELI_LILLY_AND_COMPANY-US201302000475

PATIENT
  Age: 35 Year
  Sex: Female

DRUGS (5)
  1. TOPAMAX [Concomitant]
     Active Substance: TOPIRAMATE
  2. CYMBALTA [Suspect]
     Active Substance: DULOXETINE HYDROCHLORIDE
     Indication: FIBROMYALGIA
     Dosage: 120 MG, QD
  3. CYMBALTA [Suspect]
     Active Substance: DULOXETINE HYDROCHLORIDE
     Dosage: 30 MG, UNK
  4. TEGRETOL [Concomitant]
     Active Substance: CARBAMAZEPINE
  5. XANAX [Concomitant]
     Active Substance: ALPRAZOLAM

REACTIONS (2)
  - Rash [Unknown]
  - Hyperaesthesia [Unknown]
